FAERS Safety Report 8064826-8 (Version None)
Quarter: 2012Q1

REPORT INFORMATION
  Report Type: 
  Country: None (occurrence: None)
  Receive Date: 20120124
  Receipt Date: 20120117
  Transmission Date: 20120608
  Serious: Yes (Hospitalization)
  Sender: FDA-Public Use
  Company Number: US-BIOGENIDEC-2012BI000472

PATIENT
  Age: 65 Year
  Sex: Female

DRUGS (1)
  1. AVONEX [Suspect]
     Indication: MULTIPLE SCLEROSIS
     Route: 030
     Dates: start: 20080718, end: 20111230

REACTIONS (18)
  - APHASIA [None]
  - AGITATION [None]
  - URINARY TRACT INFECTION [None]
  - VOMITING [None]
  - INCOHERENT [None]
  - WHITE BLOOD CELL COUNT INCREASED [None]
  - BALANCE DISORDER [None]
  - HEADACHE [None]
  - CSF WHITE BLOOD CELL COUNT INCREASED [None]
  - BLOOD POTASSIUM DECREASED [None]
  - FATIGUE [None]
  - HYPERTENSION [None]
  - AGGRESSION [None]
  - LETHARGY [None]
  - CONFUSIONAL STATE [None]
  - COGNITIVE DISORDER [None]
  - DEPRESSED LEVEL OF CONSCIOUSNESS [None]
  - INFLUENZA LIKE ILLNESS [None]
